FAERS Safety Report 4301828-9 (Version None)
Quarter: 2004Q1

REPORT INFORMATION
  Report Type: 
  Country: None (occurrence: None)
  Receive Date: 20040126
  Receipt Date: 20031007
  Transmission Date: 20041129
  Serious: No
  Sender: FDA-Public Use
  Company Number: USA031049279

PATIENT
  Age: 11 Year
  Sex: Female
  Weight: 25 kg

DRUGS (3)
  1. STRATTERA [Suspect]
     Indication: ATTENTION DEFICIT/HYPERACTIVITY DISORDER
     Dosage: 25 MG/DAY
     Dates: start: 20030926
  2. ZYRTEC [Concomitant]
  3. SINGULAIR [Concomitant]

REACTIONS (4)
  - CRYING [None]
  - EMOTIONAL DISORDER [None]
  - FATIGUE [None]
  - SOMNOLENCE [None]
